FAERS Safety Report 6788698-4 (Version None)
Quarter: 2010Q2

REPORT INFORMATION
  Report Type: 
  Country: None (occurrence: None)
  Receive Date: 20100623
  Receipt Date: 20080617
  Transmission Date: 20101027
  Serious: No
  Sender: FDA-Public Use
  Company Number: US-PFIZER INC-2008036478

PATIENT
  Sex: Female
  Weight: 77 kg

DRUGS (4)
  1. XALATAN [Suspect]
     Indication: OCULAR HYPERTENSION
  2. XALATAN [Suspect]
  3. XAL-EASE [Suspect]
  4. NO PRODUCT FOUND [Suspect]

REACTIONS (3)
  - CIRCUMSTANCE OR INFORMATION CAPABLE OF LEADING TO MEDICATION ERROR [None]
  - DEVICE MALFUNCTION [None]
  - DRUG DOSE OMISSION [None]
